FAERS Safety Report 5467779-1 (Version None)
Quarter: 2007Q3

REPORT INFORMATION
  Report Type: 
  Country: None (occurrence: None)
  Receive Date: 20070926
  Receipt Date: 20070920
  Transmission Date: 20080115
  Serious: Yes (Other)
  Sender: FDA-Public Use
  Company Number: PHEH2007US11602

PATIENT
  Age: 50 Year
  Sex: Male

DRUGS (1)
  1. ZOMETA [Suspect]
     Dosage: 4 MG Q4W
     Route: 042
     Dates: start: 20050101, end: 20070101

REACTIONS (5)
  - BONE DISORDER [None]
  - GINGIVAL INFECTION [None]
  - GINGIVAL PAIN [None]
  - ORAL DISORDER [None]
  - OSTEONECROSIS [None]
